FAERS Safety Report 16739042 (Version 1)
Quarter: 2019Q3

REPORT INFORMATION
  Report Type: Report from Study
  Country: None (occurrence: US)
  Receive Date: 20190826
  Receipt Date: 20190826
  Transmission Date: 20191005
  Serious: Yes (Hospitalization)
  Sender: FDA-Public Use
  Company Number: US-ABBVIE-19K-163-2893371-00

PATIENT
  Age: 82 Year
  Sex: Male
  Weight: 63.56 kg

DRUGS (1)
  1. HUMIRA [Suspect]
     Active Substance: ADALIMUMAB
     Indication: RHEUMATOID ARTHRITIS
     Route: 058

REACTIONS (5)
  - Disorientation [Unknown]
  - Pneumonia [Not Recovered/Not Resolved]
  - Hypercapnia [Unknown]
  - Urinary tract infection [Not Recovered/Not Resolved]
  - Incoherent [Unknown]

NARRATIVE: CASE EVENT DATE: 20190813
